FAERS Safety Report 10018899 (Version 1)
Quarter: 2014Q1

REPORT INFORMATION
  Report Type: Spontaneous
  Country: US (occurrence: None)
  Receive Date: 20140314
  Receipt Date: 20140314
  Transmission Date: 20141002
  Serious: Yes (Death)
  Sender: FDA-Public Use
  Company Number: None

PATIENT
  Age: 75 Year
  Sex: Female

DRUGS (1)
  1. XARELTO [Suspect]
     Indication: ATRIAL FIBRILLATION
     Route: 048
     Dates: start: 20130410, end: 20130728

REACTIONS (6)
  - Hypotension [None]
  - Haemoglobin decreased [None]
  - Haemorrhage [None]
  - Hypotension [None]
  - Prothrombin time prolonged [None]
  - Post procedural complication [None]
